FAERS Safety Report 9506733 (Version 1)
Quarter: 2013Q3

REPORT INFORMATION
  Report Type: Report from Study
  Country: JP (occurrence: JP)
  Receive Date: 20130908
  Receipt Date: 20130908
  Transmission Date: 20140515
  Serious: Yes (Other)
  Sender: FDA-Public Use
  Company Number: JP-009507513-1308JPN012917

PATIENT
  Age: 63 Year
  Sex: Male

DRUGS (2)
  1. PEGINTRON POWDER FOR INJECTION 150MICROG [Suspect]
     Dates: start: 20120326
  2. REBETOL CAPSULES 200MG [Suspect]

REACTIONS (1)
  - Pancytopenia [Recovering/Resolving]
